FAERS Safety Report 8106105 (Version 2)
Quarter: 2013Q1

REPORT INFORMATION
  Report Type: Report from Study
  Country: CA (occurrence: CA)
  Receive Date: 20110825
  Receipt Date: 20130320
  Transmission Date: 20140127
  Serious: Yes (Death)
  Sender: FDA-Public Use
  Company Number: CA-ROCHE-783141

PATIENT
  Age: 56 Year
  Sex: Male

DRUGS (6)
  1. PEG-INTERFERON ALFA 2A [Suspect]
     Indication: CHRONIC HEPATITIS C
     Route: 058
     Dates: start: 20100921, end: 20110215
  2. RIBAVIRIN [Suspect]
     Indication: CHRONIC HEPATITIS C
     Dosage: FREQUENCY:DAILY
     Route: 048
     Dates: start: 20100921, end: 20110215
  3. TYLENOL [Concomitant]
     Route: 065
  4. ZOPICLONE [Concomitant]
     Route: 065
     Dates: start: 2008, end: 20110325
  5. LEVITRA [Concomitant]
     Route: 065
     Dates: start: 20110127, end: 20110325
  6. DACLATASVIR [Suspect]
     Indication: CHRONIC HEPATITIS C
     Route: 048
     Dates: start: 20100921, end: 20110215

REACTIONS (1)
  - Intraventricular haemorrhage [Fatal]
